FAERS Safety Report 16532393 (Version 5)
Quarter: 2020Q4

REPORT INFORMATION
  Report Type: Spontaneous
  Country: GB (occurrence: GB)
  Receive Date: 20190705
  Receipt Date: 20201106
  Transmission Date: 20210113
  Serious: Yes (Hospitalization, Other)
  Sender: FDA-Public Use
  Company Number: GB-BRISTOL-MYERS SQUIBB COMPANY-BMS-2019-061702

PATIENT
  Age: 12 Year
  Sex: Female
  Weight: 50 kg

DRUGS (8)
  1. ABATACEPT [Suspect]
     Active Substance: ABATACEPT
     Indication: JUVENILE IDIOPATHIC ARTHRITIS
     Dosage: 10 MILLIGRAM/KILOGRAM, Q4WK
     Route: 042
     Dates: start: 20160505, end: 20190605
  2. ABATACEPT [Suspect]
     Active Substance: ABATACEPT
     Dosage: 10 MILLIGRAM/KILOGRAM, Q3WK
     Route: 042
  3. LANSOPRAZOLE. [Concomitant]
     Active Substance: LANSOPRAZOLE
     Indication: PRODUCT USED FOR UNKNOWN INDICATION
     Dosage: UNK
     Route: 065
  4. FOLIC ACID. [Concomitant]
     Active Substance: FOLIC ACID
     Indication: PRODUCT USED FOR UNKNOWN INDICATION
     Dosage: UNK
     Route: 065
  5. METHOTREXATE. [Suspect]
     Active Substance: METHOTREXATE
     Indication: JUVENILE IDIOPATHIC ARTHRITIS
     Dosage: 22.5 MILLIGRAM
     Route: 058
     Dates: start: 2008, end: 20190611
  6. PREDNISOLONE. [Concomitant]
     Active Substance: PREDNISOLONE
     Indication: PRODUCT USED FOR UNKNOWN INDICATION
     Dosage: 5 MILLIGRAM, QD
     Route: 065
  7. METHOTREXATE. [Concomitant]
     Active Substance: METHOTREXATE
     Indication: PRODUCT USED FOR UNKNOWN INDICATION
     Dosage: 22.5 MILLIGRAM
     Route: 058
  8. NAPROXEN. [Concomitant]
     Active Substance: NAPROXEN
     Indication: PRODUCT USED FOR UNKNOWN INDICATION
     Dosage: UNK
     Route: 065

REACTIONS (12)
  - Off label use [Unknown]
  - Demyelination [Unknown]
  - Personality change [Unknown]
  - Generalised tonic-clonic seizure [Unknown]
  - Progressive multifocal leukoencephalopathy [Unknown]
  - Feeling abnormal [Unknown]
  - Lymphoma [Unknown]
  - Encephalitis autoimmune [Unknown]
  - Malaise [Unknown]
  - Headache [Unknown]
  - Drug ineffective [Unknown]
  - Affect lability [Unknown]

NARRATIVE: CASE EVENT DATE: 20190610
